FAERS Safety Report 25367572 (Version 2)
Quarter: 2025Q3

REPORT INFORMATION
  Report Type: Spontaneous
  Country: US (occurrence: US)
  Receive Date: 20250528
  Receipt Date: 20250704
  Transmission Date: 20251021
  Serious: No
  Sender: SUNOVION
  Company Number: US-SUMITOMO PHARMA SWITZERLAND GMBH-2025SPA005441

PATIENT

DRUGS (13)
  1. ORGOVYX [Suspect]
     Active Substance: RELUGOLIX
     Indication: Prostate cancer
     Dosage: 360 MG, SINGLE
     Route: 048
  2. ORGOVYX [Suspect]
     Active Substance: RELUGOLIX
     Dosage: 120 MG, QD
     Route: 048
     Dates: start: 20250401
  3. ATORVASTATIN [Concomitant]
     Active Substance: ATORVASTATIN
     Dosage: 80 MG, QD MOUTH BY AT NIGHTLY
     Route: 048
  4. DETROL [Concomitant]
     Active Substance: TOLTERODINE TARTRATE
     Route: 065
  5. DIOVAN [Concomitant]
     Active Substance: VALSARTAN
     Route: 065
  6. HYDROCHLOROTHIAZIDE [Concomitant]
     Active Substance: HYDROCHLOROTHIAZIDE
     Dosage: 12.5 MG, QD BY MOUTH
     Route: 065
  7. METFORMIN [Concomitant]
     Active Substance: METFORMIN HYDROCHLORIDE
     Dosage: 500 MG, BID
     Route: 065
  8. ACETAMINOPHEN [Concomitant]
     Active Substance: ACETAMINOPHEN
     Indication: Pyrexia
     Route: 065
  9. ASPIRIN [Concomitant]
     Active Substance: ASPIRIN
     Dosage: 81 MG BY MOUTH QD
     Route: 065
  10. EZETIMIBE [Concomitant]
     Active Substance: EZETIMIBE
     Dosage: 10 MG, QD BY MOUTH
     Route: 048
  11. INSULIN GLARGINE [Concomitant]
     Active Substance: INSULIN GLARGINE
     Dosage: 300 UNIT/ML INJECT 10 UNITS UNDER SKIN DAILY
     Route: 065
  12. TOLTERODINE [Concomitant]
     Active Substance: TOLTERODINE
     Route: 048
  13. VALSARTAN [Concomitant]
     Active Substance: VALSARTAN
     Dosage: 320 MG, QD BY MOUTH
     Route: 065

REACTIONS (2)
  - Diabetes mellitus inadequate control [Unknown]
  - Decreased appetite [Unknown]
